FAERS Safety Report 5491126-2 (Version None)
Quarter: 2007Q4

REPORT INFORMATION
  Report Type: 
  Country: None (occurrence: None)
  Receive Date: 20071019
  Receipt Date: 20071008
  Transmission Date: 20080405
  Serious: Yes (Hospitalization, Other)
  Sender: FDA-Public Use
  Company Number: US-PFIZER INC-2007076502

PATIENT
  Sex: Female
  Weight: 94.6 kg

DRUGS (6)
  1. LYRICA [Suspect]
     Indication: NECK PAIN
     Route: 048
     Dates: start: 20070725, end: 20070821
  2. LYRICA [Suspect]
     Indication: MUSCULOSKELETAL PAIN
  3. LYRICA [Suspect]
     Indication: ARTHRALGIA
  4. HYDROCHLOROTHIAZIDE [Suspect]
     Indication: HYPERTENSION
     Route: 048
     Dates: start: 20070308, end: 20070829
  5. ALL OTHER THERAPEUTIC PRODUCTS [Suspect]
     Indication: PAIN
  6. AMITIZA [Suspect]
     Route: 048

REACTIONS (3)
  - FEELING COLD [None]
  - RENAL FAILURE ACUTE [None]
  - TREMOR [None]
